FAERS Safety Report 9691842 (Version 1)
Quarter: 2013Q4

REPORT INFORMATION
  Report Type: Report from Study
  Country: UZ (occurrence: UZ)
  Receive Date: 20131116
  Receipt Date: 20131116
  Transmission Date: 20140711
  Serious: Yes (Hospitalization)
  Sender: FDA-Public Use
  Company Number: PHHY2013UZ129455

PATIENT
  Sex: Male

DRUGS (1)
  1. GLIVEC [Suspect]
     Indication: CHRONIC MYELOID LEUKAEMIA
     Dosage: 800 MG

REACTIONS (5)
  - Hepatic cirrhosis [Unknown]
  - Hepatitis C virus test positive [Unknown]
  - Ascites [Unknown]
  - Anaemia [Unknown]
  - General physical health deterioration [Unknown]
